FAERS Safety Report 24772065 (Version 1)
Quarter: 2024Q4

REPORT INFORMATION
  Report Type: Spontaneous
  Country: US (occurrence: US)
  Receive Date: 20241224
  Receipt Date: 20241224
  Transmission Date: 20250115
  Serious: No
  Sender: SANOFI AVENTIS
  Company Number: US-SA-2024SA377651

PATIENT
  Sex: Male

DRUGS (7)
  1. DUPIXENT [Suspect]
     Active Substance: DUPILUMAB
     Indication: Dermatitis atopic
     Dosage: 300 MG/QOW
     Route: 058
  2. BENZTROPINE MESYLATE [Concomitant]
     Active Substance: BENZTROPINE MESYLATE
     Dosage: UNK
  3. FAMOTIDINE [Concomitant]
     Active Substance: FAMOTIDINE
  4. HYDROXYZINE [Concomitant]
     Active Substance: HYDROXYZINE HYDROCHLORIDE
     Dosage: UNK
  5. PREDNISONE [Concomitant]
     Active Substance: PREDNISONE
     Dosage: UNK
  6. OLANZAPINE [Concomitant]
     Active Substance: OLANZAPINE
  7. LOSARTAN POTASSIUM [Concomitant]
     Active Substance: LOSARTAN POTASSIUM
     Dosage: UNK

REACTIONS (4)
  - Pruritus [Unknown]
  - Skin haemorrhage [Unknown]
  - Dry skin [Unknown]
  - Tremor [Unknown]
